FAERS Safety Report 18439121 (Version 5)
Quarter: 2021Q4

REPORT INFORMATION
  Report Type: Report from Study
  Country: None (occurrence: US)
  Receive Date: 20201029
  Receipt Date: 20211124
  Transmission Date: 20220303
  Serious: Yes (Other)
  Sender: FDA-Public Use
  Company Number: US-AKCEA THERAPEUTICS-2020IS001427

PATIENT
  Age: 80 Year
  Sex: Male
  Weight: 93.409 kg

DRUGS (16)
  1. TEGSEDI [Suspect]
     Active Substance: INOTERSEN SODIUM
     Indication: Hereditary neuropathic amyloidosis
     Route: 058
     Dates: start: 20200722
  2. DEVICE [Suspect]
     Active Substance: DEVICE
  3. XALATAN [Concomitant]
     Active Substance: LATANOPROST
     Route: 031
  4. FLOMAX [Concomitant]
     Active Substance: TAMSULOSIN HYDROCHLORIDE
     Route: 065
  5. BUMETANIDE [Concomitant]
     Active Substance: BUMETANIDE
     Route: 065
  6. VITAMINS [Concomitant]
     Active Substance: VITAMINS
     Route: 065
  7. CHOLECALCIFEROL [Concomitant]
     Active Substance: CHOLECALCIFEROL
     Route: 065
  8. TEGSEDI [Suspect]
     Active Substance: INOTERSEN SODIUM
     Route: 058
     Dates: start: 20200804
  9. TEGSEDI [Suspect]
     Active Substance: INOTERSEN SODIUM
     Route: 058
     Dates: start: 20201201, end: 20210801
  10. TEGSEDI [Suspect]
     Active Substance: INOTERSEN SODIUM
     Route: 058
  11. ELIQUIS [Concomitant]
     Active Substance: APIXABAN
     Route: 048
  12. BUMEX [Concomitant]
     Active Substance: BUMETANIDE
     Route: 048
  13. ANTIVERT [Concomitant]
     Active Substance: MECLIZINE HYDROCHLORIDE
     Route: 048
  14. TOPROL XL [Concomitant]
     Active Substance: METOPROLOL SUCCINATE
     Route: 048
  15. ENSURE [Concomitant]
     Active Substance: AMINO ACIDS\DEXTROSE\ELECTROLYTES NOS\SOYBEAN OIL\VITAMINS
     Route: 048
  16. TAFAMIDIS [Concomitant]
     Active Substance: TAFAMIDIS
     Route: 048

REACTIONS (15)
  - Platelet count decreased [Recovered/Resolved]
  - Glomerular filtration rate decreased [Not Recovered/Not Resolved]
  - Decreased appetite [Unknown]
  - Dyspnoea [Unknown]
  - Blood creatinine increased [Not Recovered/Not Resolved]
  - Weight decreased [Unknown]
  - Protein urine present [Recovered/Resolved]
  - Device malfunction [Unknown]
  - Urine protein/creatinine ratio abnormal [Recovered/Resolved]
  - Urine ketone body present [Recovered/Resolved]
  - Hereditary neuropathic amyloidosis [Unknown]
  - Urinary occult blood positive [Recovered/Resolved]
  - Red blood cells urine positive [Recovered/Resolved]
  - Urinary casts [Recovered/Resolved]
  - Bacterial test positive [Unknown]

NARRATIVE: CASE EVENT DATE: 20200806
